FAERS Safety Report 21106080 (Version 1)
Quarter: 2022Q3

REPORT INFORMATION
  Report Type: Spontaneous
  Country: US (occurrence: US)
  Receive Date: 20220720
  Receipt Date: 20220720
  Transmission Date: 20221026
  Serious: No
  Sender: FDA-Public Use
  Company Number: US-ELI_LILLY_AND_COMPANY-US202206009783

PATIENT
  Sex: Female

DRUGS (2)
  1. EMGALITY [Suspect]
     Active Substance: GALCANEZUMAB-GNLM
     Indication: Vestibular migraine
     Dosage: UNK UNK, UNKNOWN
     Route: 065
     Dates: start: 2021
  2. EMGALITY [Suspect]
     Active Substance: GALCANEZUMAB-GNLM
     Indication: Vestibular migraine
     Dosage: UNK UNK, UNKNOWN
     Route: 065
     Dates: start: 2021

REACTIONS (6)
  - Memory impairment [Unknown]
  - Exophthalmos [Unknown]
  - Head discomfort [Unknown]
  - Ocular discomfort [Unknown]
  - Ear discomfort [Unknown]
  - Injection site haemorrhage [Unknown]
